FAERS Safety Report 7466638-2 (Version None)
Quarter: 2011Q1

REPORT INFORMATION
  Report Type: 
  Country: None (occurrence: None)
  Receive Date: 20110302
  Receipt Date: 20100922
  Transmission Date: 20110831
  Serious: Yes (Death)
  Sender: FDA-Public Use
  Company Number: 163-21880-10062751

PATIENT
  Age: 71 Year
  Sex: Female
  Weight: 72.5755 kg

DRUGS (8)
  1. HALOPERIDOL [Concomitant]
  2. REVLIMID [Suspect]
     Indication: MYELODYSPLASTIC SYNDROME
     Dosage: 10 MG, 1 IN 1 D, PO
     Route: 048
     Dates: start: 20100308, end: 20100524
  3. ROXANOL-T (MORPHINE SULFATE) [Concomitant]
  4. NYSTATIN [Concomitant]
  5. LEVOTHYROXINE SODIUM [Concomitant]
  6. DEXAMETHASONE [Concomitant]
  7. PREDNISONE [Concomitant]
  8. ATIVAN [Concomitant]

REACTIONS (2)
  - DISEASE PROGRESSION [None]
  - ACUTE LEUKAEMIA [None]
